FAERS Safety Report 14590352 (Version 8)
Quarter: 2019Q4

REPORT INFORMATION
  Report Type: Spontaneous
  Country: US (occurrence: US)
  Receive Date: 20180302
  Receipt Date: 20191203
  Transmission Date: 20200122
  Serious: Yes (Other)
  Sender: FDA-Public Use
  Company Number: US-PFIZER INC-2018087628

PATIENT
  Age: 82 Year
  Sex: Female
  Weight: 76.2 kg

DRUGS (26)
  1. TAMIFLU [Suspect]
     Active Substance: OSELTAMIVIR PHOSPHATE
     Indication: URINARY TRACT INFECTION
  2. PREDNISONE. [Concomitant]
     Active Substance: PREDNISONE
     Indication: RHEUMATOID ARTHRITIS
     Dosage: 5 MG, 1X/DAY, (EARLY A.M.)
  3. HYDROXYCHLOROQUINE [Concomitant]
     Active Substance: HYDROXYCHLOROQUINE
     Indication: RHEUMATOID ARTHRITIS
     Dosage: 200 MG, 1X/DAY [AT HS]/ (AT BED TIME)
  4. LIPITOR [Concomitant]
     Active Substance: ATORVASTATIN CALCIUM
     Indication: HYPERCHOLESTEROLAEMIA
     Dosage: 40 MG, 1X/DAY, (EACH EVENING)
  5. LEVOTHYROXINE. [Concomitant]
     Active Substance: LEVOTHYROXINE
     Indication: THYROID MASS
     Dosage: 75 UG, DAILY
  6. KEFLEX [Concomitant]
     Active Substance: CEPHALEXIN
     Indication: PROPHYLAXIS
  7. ZITHROMAX [Suspect]
     Active Substance: AZITHROMYCIN DIHYDRATE
     Indication: INFLUENZA
     Dosage: 250 MG, 2X/DAY
     Route: 048
     Dates: start: 20180204
  8. PLAVIX [Concomitant]
     Active Substance: CLOPIDOGREL BISULFATE
     Indication: ANTICOAGULANT THERAPY
     Dosage: 1 DF, 1X/DAY
     Dates: start: 20140805
  9. PYRIDIUM [Suspect]
     Active Substance: PHENAZOPYRIDINE
     Indication: INFLUENZA
     Dosage: 200 MG, AS NEEDED (Q 8 HRS, PRN)
     Route: 048
  10. PREDNISONE. [Concomitant]
     Active Substance: PREDNISONE
     Indication: ARTHRITIS
  11. PLAVIX [Concomitant]
     Active Substance: CLOPIDOGREL BISULFATE
     Dosage: 0.5 DF, UNK (HALF A TABLET)
     Dates: start: 20141031
  12. LISINOPRIL. [Concomitant]
     Active Substance: LISINOPRIL
     Indication: CARDIAC DISORDER
     Dosage: 2.5 MG, DAILY
     Dates: start: 20140918
  13. MACROBID [Suspect]
     Active Substance: NITROFURANTOIN\NITROFURANTOIN MONOHYDRATE
     Indication: INFLUENZA
     Dosage: 100 MG, 1X/DAY (FOR 7 DAYS)
     Route: 048
     Dates: start: 20180331
  14. PREDNISONE. [Concomitant]
     Active Substance: PREDNISONE
     Indication: FELTY^S SYNDROME
     Dosage: 5 MG, DAILY
  15. KEFLEX [Concomitant]
     Active Substance: CEPHALEXIN
     Indication: JOINT INJURY
     Dosage: 2000 MG, UNK, (TAKE 4 TAB. 1 HOUR BEFORE ANY DENTAL OR SURGICAL PROCEDURE)
  16. PYRIDIUM [Suspect]
     Active Substance: PHENAZOPYRIDINE
     Indication: URINARY TRACT INFECTION
  17. TYLENOL [Concomitant]
     Active Substance: ACETAMINOPHEN
     Dosage: UNK, AS NEEDED (EVERY 6 HOURS AS NEEDED)
  18. HYDROXYCHLOROQUINE [Concomitant]
     Active Substance: HYDROXYCHLOROQUINE
     Indication: FELTY^S SYNDROME
  19. XELJANZ XR [Suspect]
     Active Substance: TOFACITINIB CITRATE
     Indication: RHEUMATOID ARTHRITIS
     Dosage: 11 MG, 1X/DAY
     Route: 048
     Dates: end: 20180331
  20. ZITHROMAX [Suspect]
     Active Substance: AZITHROMYCIN DIHYDRATE
     Indication: URINARY TRACT INFECTION
  21. CRANBERRY. [Concomitant]
     Active Substance: CRANBERRY
     Indication: BLADDER DISORDER
     Dosage: UNK UNK, DAILY (JUICE 4-6 OZ DAILY)
  22. MACROBID [Suspect]
     Active Substance: NITROFURANTOIN\NITROFURANTOIN MONOHYDRATE
     Indication: URINARY TRACT INFECTION
  23. POMEGRANATE [Concomitant]
     Active Substance: POMEGRANATE
     Indication: CEREBRAL DISORDER
     Dosage: UNK UNK, DAILY (2 OZ)
  24. TYLENOL [Concomitant]
     Active Substance: ACETAMINOPHEN
     Indication: PAIN
     Dosage: 1000 MG, AS NEEDED (2Q 6 HRS.)
  25. XELJANZ XR [Suspect]
     Active Substance: TOFACITINIB CITRATE
     Indication: FELTY^S SYNDROME
     Dosage: 11 MG, 1X/DAY
     Route: 048
     Dates: start: 20180410
  26. TAMIFLU [Suspect]
     Active Substance: OSELTAMIVIR PHOSPHATE
     Indication: INFLUENZA
     Dosage: 75 MG, 2X/DAY
     Route: 048
     Dates: start: 20180215

REACTIONS (15)
  - Transient ischaemic attack [Unknown]
  - Vomiting [Unknown]
  - Immune system disorder [Recovered/Resolved]
  - Nausea [Unknown]
  - Pain [Unknown]
  - Cerebrovascular accident [Unknown]
  - Malaise [Recovered/Resolved]
  - Blood glucose increased [Unknown]
  - Cystitis [Unknown]
  - Infection [Unknown]
  - White blood cell count decreased [Recovered/Resolved]
  - Body height decreased [Unknown]
  - Influenza [Recovered/Resolved]
  - Urinary tract infection [Recovered/Resolved]
  - Memory impairment [Unknown]
